FAERS Safety Report 10871896 (Version 1)
Quarter: 2015Q1

REPORT INFORMATION
  Report Type: Report from Study
  Country: US (occurrence: US)
  Receive Date: 20150226
  Receipt Date: 20150226
  Transmission Date: 20150721
  Serious: Yes (Hospitalization, Other)
  Sender: FDA-Public Use
  Company Number: US-GILEAD-2015-0139076

PATIENT
  Age: 70 Year
  Sex: Female

DRUGS (1)
  1. RANOLAZINE [Suspect]
     Active Substance: RANOLAZINE
     Indication: DIABETIC MICROANGIOPATHY
     Dosage: 500 MG, UNK
     Route: 048

REACTIONS (2)
  - Dyspnoea [Unknown]
  - Diabetes mellitus [Unknown]
